FAERS Safety Report 14340345 (Version 1)
Quarter: 2018Q1

REPORT INFORMATION
  Report Type: Report from Study
  Country: IT (occurrence: IT)
  Receive Date: 20180101
  Receipt Date: 20180101
  Transmission Date: 20180509
  Serious: Yes (Other)
  Sender: FDA-Public Use
  Company Number: IT-ROCHE-2045860

PATIENT

DRUGS (2)
  1. CAPECITABINE. [Suspect]
     Active Substance: CAPECITABINE
     Indication: RECTAL CANCER
     Dosage: FOR 5 DAYS A WEEK
     Route: 048
  2. 5-FLUOROURACIL [Suspect]
     Active Substance: FLUOROURACIL
     Indication: RECTAL CANCER
     Dosage: 225 MG/MQ FOR 5 DAYS A WEEK
     Route: 042

REACTIONS (17)
  - Micturition urgency [Unknown]
  - Vomiting [Unknown]
  - Thrombocytopenia [Unknown]
  - Pelvic pain [Unknown]
  - Fatigue [Unknown]
  - Abdominal pain [Unknown]
  - Rectal haemorrhage [Unknown]
  - Diarrhoea [Unknown]
  - Nausea [Unknown]
  - Leukopenia [Unknown]
  - Anaemia [Unknown]
  - Cystitis [Unknown]
  - Haematuria [Unknown]
  - Proctitis [Unknown]
  - Anorectal discomfort [Unknown]
  - Pollakiuria [Unknown]
  - Erythema [Unknown]
